FAERS Safety Report 4608529-8 (Version None)
Quarter: 2005Q1

REPORT INFORMATION
  Report Type: 
  Country: None (occurrence: None)
  Receive Date: 20050311
  Receipt Date: 20050311
  Transmission Date: 20050727
  Serious: No
  Sender: FDA-Public Use
  Company Number: None

PATIENT
  Sex: Male
  Weight: 94 kg

DRUGS (11)
  1. PROVIGIL [Suspect]
     Indication: NARCOLEPSY
     Dosage: 200MG  QD ORAL
     Route: 048
     Dates: start: 20050207, end: 20050310
  2. ATENOLOL [Concomitant]
  3. CLONIDINE HCL [Concomitant]
  4. PLENDIL [Concomitant]
  5. ATACAND [Concomitant]
  6. FISH OIL CAPS [Concomitant]
  7. NASALIDE SPRAY [Concomitant]
  8. PROZAC [Concomitant]
  9. ZOCOR [Concomitant]
  10. PREDNISONE [Concomitant]
  11. ALBUTEROL [Concomitant]

REACTIONS (3)
  - DIZZINESS [None]
  - DYSPNOEA [None]
  - HEADACHE [None]
